FAERS Safety Report 9130035 (Version 4)
Quarter: 2014Q1

REPORT INFORMATION
  Report Type: Report from Study
  Country: DE (occurrence: DE)
  Receive Date: 20130228
  Receipt Date: 20140326
  Transmission Date: 20141002
  Serious: Yes (Hospitalization)
  Sender: FDA-Public Use
  Company Number: DE-BAXTER-2013BAX006621

PATIENT
  Age: 59 Year
  Sex: 0
  Weight: 77 kg

DRUGS (20)
  1. ADVATE 3000 I.E. [Suspect]
     Indication: FACTOR VIII DEFICIENCY
     Route: 042
     Dates: start: 201211
  2. ADVATE 3000 I.E. [Suspect]
     Indication: PROPHYLAXIS
     Route: 042
     Dates: start: 20130211
  3. ADVATE 3000 I.E. [Suspect]
     Indication: POST PROCEDURAL HAEMORRHAGE
     Route: 065
     Dates: start: 20130207
  4. ADVATE 3000 I.E. [Suspect]
     Route: 065
     Dates: start: 20130208
  5. ADVATE 3000 I.E. [Suspect]
     Route: 065
     Dates: start: 20130209
  6. ADVATE 3000 I.E. [Suspect]
     Route: 065
     Dates: start: 20130211
  7. ADVATE 3000 I.E. [Suspect]
     Route: 065
     Dates: start: 20130212
  8. ADVATE 3000 I.E. [Suspect]
     Route: 065
     Dates: start: 20130213
  9. ADVATE 3000 I.E. [Suspect]
     Route: 065
     Dates: start: 20130214
  10. ADVATE 3000 I.E. [Suspect]
     Route: 065
     Dates: start: 20130216
  11. ETORICOXIB [Suspect]
     Indication: ARTHRITIS
     Dates: start: 20121204
  12. ARCOXIA [Concomitant]
     Indication: PRODUCT USED FOR UNKNOWN INDICATION
  13. DEKRISTOL [Concomitant]
     Indication: PRODUCT USED FOR UNKNOWN INDICATION
  14. NORVIR [Concomitant]
     Indication: HIV INFECTION
     Route: 048
     Dates: start: 20130101
  15. PREZISTA [Concomitant]
     Indication: HIV INFECTION
  16. PREZISTA [Concomitant]
     Route: 048
     Dates: start: 20130101
  17. EXFORGE [Concomitant]
     Indication: PRODUCT USED FOR UNKNOWN INDICATION
     Dates: end: 20130223
  18. AMILORID [Concomitant]
     Indication: HYPERTENSION
     Dosage: 1/2 DOSAGE FORM
     Dates: end: 20130223
  19. AMILORID [Concomitant]
     Dosage: 5MG/50MG
     Route: 048
     Dates: start: 20130101
  20. KIVEXA [Concomitant]
     Indication: HIV INFECTION
     Dosage: 600MG/300MG
     Route: 048
     Dates: start: 20130101

REACTIONS (1)
  - Acute myocardial infarction [Recovered/Resolved]
